FAERS Safety Report 5472169-1 (Version None)
Quarter: 2007Q3

REPORT INFORMATION
  Report Type: 
  Country: None (occurrence: None)
  Receive Date: 20070928
  Receipt Date: 20070926
  Transmission Date: 20080115
  Serious: Yes (Death)
  Sender: FDA-Public Use
  Company Number: US-GILEAD-2007-0013540

PATIENT
  Sex: Female
  Weight: 59.02 kg

DRUGS (11)
  1. LETAIRIS [Suspect]
     Indication: PULMONARY HYPERTENSION
     Route: 048
  2. PROTONIX [Concomitant]
     Route: 048
  3. ALDACTONE [Concomitant]
     Route: 048
  4. LEVAQUIN [Concomitant]
     Route: 048
  5. PREDNISONE [Concomitant]
     Route: 048
  6. LYRICA [Concomitant]
     Route: 048
  7. RIFAMPIN [Concomitant]
     Route: 048
  8. METOPROLOL SUCCINATE [Concomitant]
     Route: 048
  9. FERROUS SULFATE TAB [Concomitant]
     Route: 048
  10. PROZAC [Concomitant]
     Route: 048
  11. MAGNESIUM SULFATE [Concomitant]
     Route: 048

REACTIONS (1)
  - DEATH [None]
